FAERS Safety Report 4507399-6 (Version None)
Quarter: 2004Q4

REPORT INFORMATION
  Report Type: 
  Country: None (occurrence: None)
  Receive Date: 20041118
  Receipt Date: 20041105
  Transmission Date: 20050328
  Serious: Yes (Other)
  Sender: FDA-Public Use
  Company Number: 2004061141

PATIENT
  Age: 72 Year
  Sex: Female

DRUGS (4)
  1. NEURONTIN [Suspect]
     Indication: NEUROPATHY PERIPHERAL
     Dosage: 600 MG (1 IN 1 D), ORAL
     Route: 048
     Dates: start: 20020101, end: 20040101
  2. DIOVAN HCT [Concomitant]
  3. ROFECOXIB [Concomitant]
  4. PREMARIN [Concomitant]

REACTIONS (4)
  - CARDIAC FAILURE [None]
  - COUGH [None]
  - DYSPNOEA [None]
  - GASTRIC BANDING [None]
